FAERS Safety Report 14113089 (Version 4)
Quarter: 2017Q4

REPORT INFORMATION
  Report Type: Report from Study
  Country: US (occurrence: US)
  Receive Date: 20171023
  Receipt Date: 20171115
  Transmission Date: 20180321
  Serious: No
  Sender: FDA-Public Use
  Company Number: US-AMGEN-USASL2017157340

PATIENT
  Sex: Male

DRUGS (1)
  1. ENBREL [Suspect]
     Active Substance: ETANERCEPT
     Indication: JUVENILE IDIOPATHIC ARTHRITIS
     Dosage: 25 MG, QWK
     Route: 065

REACTIONS (6)
  - Injection site urticaria [Recovered/Resolved]
  - Injection site bruising [Unknown]
  - Ill-defined disorder [Unknown]
  - Sinusitis [Unknown]
  - Bronchitis [Unknown]
  - Headache [Unknown]
